FAERS Safety Report 18368112 (Version 1)
Quarter: 2020Q4

REPORT INFORMATION
  Report Type: Report from Study
  Country: CA (occurrence: CA)
  Receive Date: 20201009
  Receipt Date: 20201009
  Transmission Date: 20210114
  Serious: Yes (Other)
  Sender: FDA-Public Use
  Company Number: CA-ASTRAZENECA-2020SF25988

PATIENT
  Age: 22147 Day
  Sex: Female

DRUGS (22)
  1. BUSPIRONE [Concomitant]
     Active Substance: BUSPIRONE HYDROCHLORIDE
     Indication: ANXIETY
  2. CALQUENCE [Suspect]
     Active Substance: ACALABRUTINIB
     Indication: CHRONIC LYMPHOCYTIC LEUKAEMIA
     Route: 048
     Dates: start: 20200908
  3. MAGNESIUM [Concomitant]
     Active Substance: MAGNESIUM
  4. GLUCOSAMINE CHONDROITIN [Concomitant]
     Active Substance: CHONDROITIN SULFATE (BOVINE)\GLUCOSAMINE HYDROCHLORIDE
  5. IMBRUVICA [Concomitant]
     Active Substance: IBRUTINIB
     Indication: CHRONIC LYMPHOCYTIC LEUKAEMIA
     Route: 065
     Dates: start: 20200101
  6. TEA [Concomitant]
     Active Substance: TEA LEAF
  7. MANGANESE [Concomitant]
     Active Substance: MANGANESE CHLORIDE
  8. ATIVAN [Concomitant]
     Active Substance: LORAZEPAM
     Indication: PANIC ATTACK
     Route: 065
     Dates: start: 20200101
  9. CANDESARTAN. [Concomitant]
     Active Substance: CANDESARTAN
     Route: 065
     Dates: start: 20200101
  10. CALCIUM CARBONATE. [Concomitant]
     Active Substance: CALCIUM CARBONATE
  11. SUBOXONE [Concomitant]
     Active Substance: BUPRENORPHINE HYDROCHLORIDE\NALOXONE HYDROCHLORIDE
     Route: 065
     Dates: start: 20200101
  12. DIAZEPAM. [Concomitant]
     Active Substance: DIAZEPAM
  13. MULTIVITAMIN [Concomitant]
     Active Substance: VITAMINS
  14. TURMERIC [Concomitant]
     Active Substance: HERBALS\TURMERIC
  15. MIRTAZAPINE. [Concomitant]
     Active Substance: MIRTAZAPINE
  16. GABAPENTIN. [Concomitant]
     Active Substance: GABAPENTIN
  17. OMEGA-3 ACIDS [Concomitant]
     Active Substance: OMEGA-3 FATTY ACIDS
  18. ACETAMINOPHEN. [Concomitant]
     Active Substance: ACETAMINOPHEN
  19. TAURINE [Concomitant]
     Active Substance: TAURINE
  20. CANNABIS [Concomitant]
     Active Substance: CANNABIS SATIVA SUBSP. INDICA TOP
  21. VENLAFAXINE [Concomitant]
     Active Substance: VENLAFAXINE HYDROCHLORIDE
  22. VITAMIN C [Concomitant]
     Active Substance: ASCORBIC ACID

REACTIONS (10)
  - Panic reaction [Recovering/Resolving]
  - Tremor [Recovering/Resolving]
  - Nausea [Recovering/Resolving]
  - Inappropriate schedule of product administration [Unknown]
  - Cold sweat [Recovering/Resolving]
  - Peripheral swelling [Not Recovered/Not Resolved]
  - Chest pain [Recovering/Resolving]
  - Breast swelling [Not Recovered/Not Resolved]
  - Feeling abnormal [Recovering/Resolving]
  - Dizziness [Recovering/Resolving]

NARRATIVE: CASE EVENT DATE: 20200911
